FAERS Safety Report 14855153 (Version 1)
Quarter: 2018Q2

REPORT INFORMATION
  Report Type: Spontaneous
  Country: US (occurrence: US)
  Receive Date: 20180507
  Receipt Date: 20180507
  Transmission Date: 20180711
  Serious: No
  Sender: FDA-Public Use
  Company Number: US-ROCHE-1939102

PATIENT
  Age: 74 Year
  Sex: Male
  Weight: 95.34 kg

DRUGS (15)
  1. TRAZODONE [Concomitant]
     Active Substance: TRAZODONE HYDROCHLORIDE
     Route: 065
  2. SINGULAIR [Concomitant]
     Active Substance: MONTELUKAST SODIUM
     Route: 065
  3. SIMVASTATIN. [Concomitant]
     Active Substance: SIMVASTATIN
     Route: 065
  4. TORSEMIDE. [Concomitant]
     Active Substance: TORSEMIDE
     Route: 065
  5. ESBRIET [Suspect]
     Active Substance: PIRFENIDONE
     Dosage: 3 PILLS TWO TIMES PER DAY ;ONGOING: NO
     Route: 048
     Dates: start: 20170330, end: 20170515
  6. DIGITEK [Concomitant]
     Active Substance: DIGOXIN
     Route: 065
  7. TYLENOL [Concomitant]
     Active Substance: ACETAMINOPHEN
     Route: 065
  8. NOVOLOG [Concomitant]
     Active Substance: INSULIN ASPART
     Route: 065
  9. ENTRESTO [Concomitant]
     Active Substance: SACUBITRIL\VALSARTAN
     Dosage: 97-103 MG
     Route: 065
  10. METOPROLOL. [Concomitant]
     Active Substance: METOPROLOL
     Route: 065
  11. ESBRIET [Suspect]
     Active Substance: PIRFENIDONE
     Indication: PULMONARY FIBROSIS
     Dosage: 1 PILL THREE TIMES PER DAY ;ONGOING: NO
     Route: 048
     Dates: start: 2017, end: 2017
  12. ESBRIET [Suspect]
     Active Substance: PIRFENIDONE
     Dosage: 3 PILLS THREE TIMES PER DAY ;ONGOING: NO
     Route: 048
     Dates: start: 2017, end: 20170329
  13. FISH OIL [Concomitant]
     Active Substance: FISH OIL
     Route: 065
  14. ESBRIET [Suspect]
     Active Substance: PIRFENIDONE
     Dosage: 2 PILLS THREE TIMES PER DAY ;ONGOING: NO
     Route: 048
     Dates: start: 2017, end: 2017
  15. ESBRIET [Suspect]
     Active Substance: PIRFENIDONE
     Dosage: 3 CAPSULES THREE TIMES PER DAY WITH FOOD
     Route: 048

REACTIONS (4)
  - Cough [Recovering/Resolving]
  - Rash [Unknown]
  - Pruritus [Recovering/Resolving]
  - Rash [Recovering/Resolving]

NARRATIVE: CASE EVENT DATE: 2017
